FAERS Safety Report 9133412 (Version 4)
Quarter: 2017Q2

REPORT INFORMATION
  Report Type: Spontaneous
  Country: US (occurrence: US)
  Receive Date: 20130301
  Receipt Date: 20170609
  Transmission Date: 20170830
  Serious: Yes (Hospitalization, Other)
  Sender: FDA-Public Use
  Company Number: US-PFIZER INC-2013071901

PATIENT
  Age: 54 Year
  Sex: Female
  Weight: 65 kg

DRUGS (8)
  1. KLONOPIN [Concomitant]
     Active Substance: CLONAZEPAM
     Dosage: UNK
     Dates: start: 1999
  2. RESTASIS [Concomitant]
     Active Substance: CYCLOSPORINE
     Dosage: UNK
  3. LACTULOSE. [Concomitant]
     Active Substance: LACTULOSE
     Dosage: UNK
     Dates: start: 2006
  4. BUMEX [Concomitant]
     Active Substance: BUMETANIDE
     Dosage: UNK
     Dates: start: 2010
  5. SOMA [Concomitant]
     Active Substance: CARISOPRODOL
     Dosage: UNK
     Dates: start: 1999
  6. ESTRING [Suspect]
     Active Substance: ESTRADIOL
     Indication: MENOPAUSE
     Dosage: UNK, EVERY 3 MONTHS
     Route: 067
  7. ESTRING [Suspect]
     Active Substance: ESTRADIOL
     Indication: HORMONE THERAPY
     Dosage: UNK, EVERY 3 MONTHS
     Route: 067
     Dates: start: 2011
  8. SURFAK [Concomitant]
     Indication: FAECES HARD
     Dosage: UNK
     Dates: start: 1999

REACTIONS (13)
  - Osteoarthritis [Unknown]
  - Vulvovaginal pruritus [Not Recovered/Not Resolved]
  - Mood swings [Unknown]
  - Musculoskeletal stiffness [Not Recovered/Not Resolved]
  - Fibromyalgia [Unknown]
  - Vulvovaginal candidiasis [Unknown]
  - Visual impairment [Not Recovered/Not Resolved]
  - Cataract [Unknown]
  - Hot flush [Unknown]
  - Vulvovaginal dryness [Unknown]
  - Bacterial vaginosis [Unknown]
  - Tearfulness [Unknown]
  - Vulvovaginal mycotic infection [Not Recovered/Not Resolved]

NARRATIVE: CASE EVENT DATE: 2011
